FAERS Safety Report 6511447-1 (Version None)
Quarter: 2009Q4

REPORT INFORMATION
  Report Type: 
  Country: None (occurrence: None)
  Receive Date: 20091222
  Receipt Date: 20091216
  Transmission Date: 20100525
  Serious: Yes (Hospitalization)
  Sender: FDA-Public Use
  Company Number: DE-ABBOTT-09P-062-0614974-00

PATIENT
  Sex: Female
  Weight: 98 kg

DRUGS (8)
  1. HUMIRA [Suspect]
     Indication: RHEUMATOID ARTHRITIS
     Route: 058
     Dates: start: 20090901, end: 20091115
  2. METHOTREXAT [Concomitant]
     Indication: RHEUMATOID ARTHRITIS
     Route: 058
     Dates: start: 19980101, end: 20091206
  3. ARCOXIA [Concomitant]
     Indication: RHEUMATOID ARTHRITIS
     Route: 048
     Dates: start: 20080101
  4. SIFROL [Concomitant]
     Indication: RESTLESS LEGS SYNDROME
     Route: 048
  5. NORSPAN [Concomitant]
     Indication: BONE PAIN
     Dosage: 1-10 MCG/HR PLASTER PER WEEK
     Route: 062
  6. GABAPENTIN [Concomitant]
     Indication: NEURALGIA
     Route: 048
  7. GABAPENTIN [Concomitant]
     Indication: BACK PAIN
  8. CYMBALTA [Concomitant]
     Indication: PAIN
     Route: 048

REACTIONS (5)
  - HEADACHE [None]
  - HYPOAESTHESIA FACIAL [None]
  - NEUROLOGICAL SYMPTOM [None]
  - PARAESTHESIA [None]
  - SPEECH DISORDER [None]
